FAERS Safety Report 7745896-0 (Version None)
Quarter: 2011Q3

REPORT INFORMATION
  Report Type: 
  Country: None (occurrence: None)
  Receive Date: 20110913
  Receipt Date: 20110907
  Transmission Date: 20111222
  Serious: No
  Sender: FDA-Public Use
  Company Number: US-PFIZER INC-2010008958

PATIENT
  Sex: Male

DRUGS (2)
  1. GEMFIBROZIL [Concomitant]
     Dosage: UNK
  2. LOPID [Suspect]
     Dosage: 600 MG, 2X/DAY
     Route: 048

REACTIONS (1)
  - DRUG INEFFECTIVE [None]
